FAERS Safety Report 7231242-8 (Version None)
Quarter: 2011Q1

REPORT INFORMATION
  Report Type: 
  Country: None (occurrence: None)
  Receive Date: 20110118
  Receipt Date: 20110113
  Transmission Date: 20110831
  Serious: Yes (Hospitalization)
  Sender: FDA-Public Use
  Company Number: B0693974A

PATIENT
  Sex: Female
  Weight: 70 kg

DRUGS (1)
  1. AUGMENTIN '125' [Suspect]
     Indication: TOOTH INFECTION
     Dosage: 1G TWICE PER DAY
     Route: 048
     Dates: start: 20100721, end: 20100723

REACTIONS (3)
  - PARAESTHESIA [None]
  - DIARRHOEA [None]
  - HYPOKALAEMIA [None]
